FAERS Safety Report 8305441-8 (Version None)
Quarter: 2012Q2

REPORT INFORMATION
  Report Type: 
  Country: None (occurrence: None)
  Receive Date: 20120423
  Receipt Date: 20120413
  Transmission Date: 20120825
  Serious: Yes (Hospitalization)
  Sender: FDA-Public Use
  Company Number: JP-CELGENEUS-087-21880-12041771

PATIENT

DRUGS (3)
  1. ELOTUZUMAB [Suspect]
  2. REVLIMID [Suspect]
  3. DEXAMETHASONE [Suspect]

REACTIONS (1)
  - BENIGN PROSTATIC HYPERPLASIA [None]
